FAERS Safety Report 11893831 (Version 1)
Quarter: 2016Q1

REPORT INFORMATION
  Report Type: Spontaneous
  Country: US (occurrence: US)
  Receive Date: 20160107
  Receipt Date: 20160107
  Transmission Date: 20160526
  Serious: No
  Sender: FDA-Public Use
  Company Number: US-GLENMARK PHARMACEUTICALS INC, USA.-2015GMK021030

PATIENT

DRUGS (1)
  1. CALCIPOTRIENE CREAM 0.005% [Suspect]
     Active Substance: CALCIPOTRIENE
     Indication: PSORIASIS
     Dosage: UNK

REACTIONS (5)
  - Product substitution issue [Unknown]
  - Application site erythema [Unknown]
  - Product colour issue [Unknown]
  - Application site pain [Unknown]
  - Drug administered at inappropriate site [Unknown]
